FAERS Safety Report 24324396 (Version 1)
Quarter: 2024Q3

REPORT INFORMATION
  Report Type: Spontaneous
  Country: IT (occurrence: IT)
  Receive Date: 20240916
  Receipt Date: 20240916
  Transmission Date: 20241017
  Serious: Yes (Other)
  Sender: MERCK
  Company Number: IT-009507513-2409ITA003642

PATIENT
  Sex: Female

DRUGS (4)
  1. PEMBROLIZUMAB [Suspect]
     Active Substance: PEMBROLIZUMAB
     Indication: Squamous cell carcinoma of pharynx
     Dosage: 200 MG/M2 ON DAY 1 EVERY 21 DAYS
     Dates: start: 202204, end: 202206
  2. PEMBROLIZUMAB [Suspect]
     Active Substance: PEMBROLIZUMAB
     Dosage: 200 MG EVERY 21 DAYS
     Route: 042
     Dates: start: 202209, end: 202406
  3. CISPLATIN [Suspect]
     Active Substance: CISPLATIN
     Indication: Squamous cell carcinoma of pharynx
     Dosage: 100 MILLIGRAM/SQ. METER, DAY 1 EVERY 21 DAYS
     Dates: start: 202204, end: 2022
  4. FLUOROURACIL [Suspect]
     Active Substance: FLUOROURACIL
     Indication: Squamous cell carcinoma of pharynx
     Dosage: 4000 MILLIGRAM/SQ. METER, STARTED AS A CONTINUOUS INFUSION OVER 96 HOURS
     Dates: start: 202204, end: 2022

REACTIONS (3)
  - Hypothyroidism [Unknown]
  - Tumour pseudoprogression [Unknown]
  - Incorrect dose administered [Unknown]

NARRATIVE: CASE EVENT DATE: 20220401
